FAERS Safety Report 7698839-2 (Version None)
Quarter: 2011Q3

REPORT INFORMATION
  Report Type: 
  Country: None (occurrence: None)
  Receive Date: 20110818
  Receipt Date: 20110818
  Transmission Date: 20111222
  Serious: No
  Sender: FDA-Public Use
  Company Number: None

PATIENT
  Sex: Female
  Weight: 63.9572 kg

DRUGS (1)
  1. LEVOTHYROXINE SODIUM [Suspect]
     Indication: HYPOTHYROIDISM
     Dosage: 1 75MCG TAB QD PO
     Route: 048
     Dates: start: 20090101, end: 20110616

REACTIONS (4)
  - PRODUCT SUBSTITUTION ISSUE [None]
  - TEMPERATURE INTOLERANCE [None]
  - TREATMENT FAILURE [None]
  - FATIGUE [None]
